FAERS Safety Report 7059942-3 (Version None)
Quarter: 2010Q4

REPORT INFORMATION
  Report Type: 
  Country: None (occurrence: None)
  Receive Date: 20101025
  Receipt Date: 20101021
  Transmission Date: 20110411
  Serious: Yes (Other)
  Sender: FDA-Public Use
  Company Number: US-PERRIGO-10US013040

PATIENT
  Age: 6 Year
  Sex: Male

DRUGS (1)
  1. PE TRIACTING CC NITETIME GRP LIQ 913 [Suspect]
     Indication: PRODUCT USED FOR UNKNOWN INDICATION
     Dosage: 15
     Route: 048
     Dates: start: 20100908

REACTIONS (3)
  - BLOOD ALCOHOL INCREASED [None]
  - INCORRECT DOSE ADMINISTERED [None]
  - ROAD TRAFFIC ACCIDENT [None]
